FAERS Safety Report 14729541 (Version 12)
Quarter: 2018Q3

REPORT INFORMATION
  Report Type: Report from Study
  Country: US (occurrence: US)
  Receive Date: 20180406
  Receipt Date: 20180914
  Transmission Date: 20181010
  Serious: Yes (Death, Hospitalization, Other)
  Sender: FDA-Public Use
  Company Number: US-ACTELION-A-NJ2018-168269

PATIENT
  Age: 74 Year
  Sex: Female
  Weight: 58.96 kg

DRUGS (6)
  1. ADEMPAS [Concomitant]
     Active Substance: RIOCIGUAT
     Dosage: 2.5 MG, TID
     Dates: start: 20171108, end: 20180813
  2. SPIRONOLACTONE A L [Concomitant]
     Active Substance: SPIRONOLACTONE
     Dosage: 25 UNK, UNK
  3. VELETRI [Suspect]
     Active Substance: EPOPROSTENOL
     Dosage: 113 NG/KG, PER MIN
     Route: 042
  4. VELETRI [Suspect]
     Active Substance: EPOPROSTENOL
     Indication: PULMONARY ARTERIAL HYPERTENSION
     Dosage: 90 NG/KG, PER MIN
     Route: 042
     Dates: end: 20180813
  5. VELETRI [Suspect]
     Active Substance: EPOPROSTENOL
     Dosage: 98 NG/KG, PER MIN
     Route: 042
     Dates: end: 20180813
  6. OPSUMIT [Suspect]
     Active Substance: MACITENTAN
     Indication: PULMONARY ARTERIAL HYPERTENSION
     Dosage: 10 MG, QD
     Route: 048
     Dates: start: 20150617, end: 20180813

REACTIONS (34)
  - Right ventricular failure [Fatal]
  - Respiratory failure [Recovered/Resolved with Sequelae]
  - Renal neoplasm [Unknown]
  - Dyspnoea [Recovered/Resolved with Sequelae]
  - Adrenal insufficiency [Unknown]
  - Inguinal hernia [Recovered/Resolved with Sequelae]
  - Adrenal mass [Unknown]
  - Cardiorenal syndrome [Recovered/Resolved]
  - Catheter management [Unknown]
  - Oedema peripheral [Fatal]
  - B-cell lymphoma [Fatal]
  - Swelling face [Recovered/Resolved]
  - Peripheral swelling [Unknown]
  - Flushing [Recovered/Resolved]
  - Asthenia [Recovered/Resolved]
  - Abdominal pain [Recovered/Resolved with Sequelae]
  - Fluid overload [Fatal]
  - Disease progression [Recovered/Resolved with Sequelae]
  - Condition aggravated [Unknown]
  - Device occlusion [Unknown]
  - Headache [Not Recovered/Not Resolved]
  - Constipation [Recovered/Resolved with Sequelae]
  - Ascites [Unknown]
  - Decreased appetite [Unknown]
  - Syncope [Unknown]
  - Biopsy kidney [Unknown]
  - Malaise [Recovered/Resolved]
  - Confusional state [Unknown]
  - Hypoxia [Unknown]
  - Pulmonary arterial hypertension [Fatal]
  - Cardiac failure congestive [Unknown]
  - Device leakage [Recovered/Resolved]
  - Wrong dose [Unknown]
  - Fatigue [Unknown]

NARRATIVE: CASE EVENT DATE: 201803
